FAERS Safety Report 5532811-3 (Version None)
Quarter: 2007Q4

REPORT INFORMATION
  Report Type: 
  Country: None (occurrence: None)
  Receive Date: 20071130
  Receipt Date: 20071130
  Transmission Date: 20080405
  Serious: Yes (Other)
  Sender: FDA-Public Use
  Company Number: None

PATIENT
  Age: 21 Year
  Sex: Female
  Weight: 72.5755 kg

DRUGS (1)
  1. AMBIEN [Suspect]
     Indication: INSOMNIA
     Dosage: 10MG 1 PER EVENING PO
     Route: 048
     Dates: start: 20071024, end: 20071024

REACTIONS (2)
  - LEGAL PROBLEM [None]
  - ROAD TRAFFIC ACCIDENT [None]
